FAERS Safety Report 11055885 (Version 2)
Quarter: 2015Q3

REPORT INFORMATION
  Report Type: Spontaneous
  Country: US (occurrence: US)
  Receive Date: 20150422
  Receipt Date: 20150717
  Transmission Date: 20151125
  Serious: Yes (Hospitalization)
  Sender: FDA-Public Use
  Company Number: US-JNJFOC-20150412298

PATIENT
  Age: 21 Year
  Sex: Male
  Weight: 72.58 kg

DRUGS (1)
  1. TOPAMAX [Suspect]
     Active Substance: TOPIRAMATE
     Indication: MIGRAINE
     Route: 048
     Dates: start: 20150310, end: 2015

REACTIONS (4)
  - Laceration [Not Recovered/Not Resolved]
  - Self injurious behaviour [Recovered/Resolved]
  - Violence-related symptom [Recovered/Resolved]
  - Psychotic disorder [Recovered/Resolved]

NARRATIVE: CASE EVENT DATE: 20150315
